FAERS Safety Report 6372188-7 (Version None)
Quarter: 2009Q3

REPORT INFORMATION
  Report Type: 
  Country: None (occurrence: None)
  Receive Date: 20090924
  Receipt Date: 20090917
  Transmission Date: 20100115
  Serious: Yes (Other)
  Sender: FDA-Public Use
  Company Number: US-JNJCH-2009025178

PATIENT
  Age: 65 Year
  Sex: Female
  Weight: 108.9 kg

DRUGS (4)
  1. BENADRYL SEVERE ALLERGY + SINUS HEADACHE W/PE [Suspect]
     Indication: SINUS HEADACHE
     Dosage: TEXT:2 CAPLETS 1X BEFORE BED
     Route: 048
     Dates: start: 20090908, end: 20090916
  2. LEVOTHYROXINE SODIUM [Concomitant]
     Indication: HYPOTHYROIDISM
     Dosage: TEXT:150 MG ONCE
     Route: 065
  3. HYDROCHLOROTHIAZIDE [Concomitant]
     Indication: BLOOD PRESSURE
     Dosage: TEXT:25MG ONCE
     Route: 065
  4. PAXIL [Concomitant]
     Indication: DRUG USE FOR UNKNOWN INDICATION
     Dosage: TEXT:40 MG ONCE
     Route: 065

REACTIONS (2)
  - FALL [None]
  - LOSS OF CONSCIOUSNESS [None]
